FAERS Safety Report 25700333 (Version 1)
Quarter: 2025Q3

REPORT INFORMATION
  Report Type: Spontaneous
  Country: QA (occurrence: QA)
  Receive Date: 20250819
  Receipt Date: 20250819
  Transmission Date: 20251020
  Serious: Yes (Hospitalization)
  Sender: AMGEN
  Company Number: QA-AMGEN-QATSP2025161859

PATIENT
  Age: 8 Year
  Sex: Female

DRUGS (13)
  1. FILGRASTIM [Suspect]
     Active Substance: FILGRASTIM
     Indication: Neutropenia
     Route: 065
  2. METHOTREXATE [Suspect]
     Active Substance: METHOTREXATE
     Indication: Chloroma
     Route: 029
  3. HYDROCORTISONE SODIUM SUCCINATE [Suspect]
     Active Substance: HYDROCORTISONE SODIUM SUCCINATE
     Indication: Chloroma
     Route: 029
  4. CYTARABINE [Suspect]
     Active Substance: CYTARABINE
     Indication: Chloroma
     Route: 029
  5. CYTARABINE [Suspect]
     Active Substance: CYTARABINE
     Dosage: 1300 MILLIGRAM, Q12H  TOTAL OF 8 DOSES OVER FOUR DAY
     Route: 040
  6. CYTARABINE [Suspect]
     Active Substance: CYTARABINE
     Route: 029
  7. CYTARABINE [Suspect]
     Active Substance: CYTARABINE
     Dosage: 1270 MILLIGRAM, Q12H FOR A TOTAL OF 8 DOSES
     Route: 040
  8. CYTARABINE [Suspect]
     Active Substance: CYTARABINE
     Dosage: 70 MILLIGRAM, (THIRD CYCLE)
     Route: 029
  9. CYTARABINE [Suspect]
     Active Substance: CYTARABINE
     Dosage: 1280 MILLIGRAM, Q12H
     Route: 040
  10. MITOXANTRONE [Suspect]
     Active Substance: MITOXANTRONE HYDROCHLORIDE
     Indication: Chloroma
     Route: 040
  11. DEXRAZOXANE [Suspect]
     Active Substance: DEXRAZOXANE
     Indication: Chloroma
     Route: 040
  12. TEICOPLANIN [Suspect]
     Active Substance: TEICOPLANIN
     Indication: Chloroma
     Route: 065
  13. MEROPENEM [Suspect]
     Active Substance: MEROPENEM
     Indication: Chloroma
     Route: 065

REACTIONS (2)
  - Pneumocystis jirovecii pneumonia [Recovering/Resolving]
  - Febrile neutropenia [Unknown]
